FAERS Safety Report 6774598-2 (Version None)
Quarter: 2010Q2

REPORT INFORMATION
  Report Type: 
  Country: None (occurrence: None)
  Receive Date: 20100615
  Receipt Date: 20100615
  Transmission Date: 20101027
  Serious: Yes (Disabling)
  Sender: FDA-Public Use
  Company Number: None

PATIENT
  Age: 66 Year
  Sex: Female
  Weight: 60 kg

DRUGS (1)
  1. FLUNISOLIDE 2 SPRAYS TWICE A DAY NASAL SPRAY [Suspect]
     Indication: MULTIPLE ALLERGIES
     Dosage: 2 SPRAYS TWICE A DAY NASAL SPRAY
     Route: 045

REACTIONS (1)
  - NASAL SEPTUM PERFORATION [None]
